FAERS Safety Report 20643986 (Version 2)
Quarter: 2022Q2

REPORT INFORMATION
  Report Type: Spontaneous
  Country: JP (occurrence: JP)
  Receive Date: 20220328
  Receipt Date: 20220412
  Transmission Date: 20220721
  Serious: Yes (Hospitalization)
  Sender: FDA-Public Use
  Company Number: JP-ZAMBON-202103622COR

PATIENT
  Age: 9 Decade
  Sex: Female

DRUGS (2)
  1. SAFINAMIDE [Suspect]
     Active Substance: SAFINAMIDE
     Indication: Product used for unknown indication
     Dosage: NOT PROVIDED
     Route: 048
     Dates: start: 20211124
  2. NEUPRO [Concomitant]
     Active Substance: ROTIGOTINE
     Dosage: NOT PROVIDED

REACTIONS (4)
  - Fracture [Unknown]
  - Dizziness [Unknown]
  - Fall [Recovered/Resolved]
  - Somnolence [Recovered/Resolved]

NARRATIVE: CASE EVENT DATE: 20211126
